FAERS Safety Report 7001028-8 (Version None)
Quarter: 2010Q3

REPORT INFORMATION
  Report Type: 
  Country: None (occurrence: None)
  Receive Date: 20100920
  Receipt Date: 20070606
  Transmission Date: 20110219
  Serious: Yes (Other)
  Sender: FDA-Public Use
  Company Number: US-ASTRAZENECA-2006UW20939

PATIENT
  Sex: Female
  Weight: 104.3 kg

DRUGS (7)
  1. SEROQUEL [Suspect]
     Dosage: STRENGTH - 100 MG AND 200 MG
     Route: 048
     Dates: start: 20040227
  2. SEROQUEL [Suspect]
     Route: 048
  3. ZOLOFT [Concomitant]
  4. PAXIL [Concomitant]
     Dates: start: 20021126
  5. XANAX [Concomitant]
     Dates: start: 20021126
  6. HYDROCODONE BITARTRATE + ACETAMINOPHEN [Concomitant]
     Dosage: STRENGTH - 5 MG AND 500 MG
     Dates: start: 20040120
  7. CEPHALEXIN [Concomitant]
     Dates: start: 20040316

REACTIONS (2)
  - DIABETES MELLITUS [None]
  - PANCREATITIS [None]
